FAERS Safety Report 8377010-5 (Version None)
Quarter: 2012Q2

REPORT INFORMATION
  Report Type: 
  Country: None (occurrence: None)
  Receive Date: 20120522
  Receipt Date: 20120518
  Transmission Date: 20120825
  Serious: Yes (Death, Life-Threatening, Hospitalization, Other)
  Sender: FDA-Public Use
  Company Number: NL-ASTRAZENECA-2012SE28061

PATIENT
  Age: 25004 Day
  Sex: Male

DRUGS (27)
  1. FRAXIPARINE [Concomitant]
     Indication: THROMBOSIS PROPHYLAXIS
     Route: 058
     Dates: start: 20120423, end: 20120424
  2. PRIMPERAN TAB [Concomitant]
     Indication: NAUSEA
     Route: 042
     Dates: start: 20120423
  3. FENTANYL-100 [Concomitant]
     Indication: PAIN
     Route: 042
     Dates: start: 20120423, end: 20120423
  4. NOREPINEPHRINE BITARTRATE [Concomitant]
     Indication: ANURIA
     Route: 042
     Dates: start: 20120423, end: 20120424
  5. ASPIRIN [Concomitant]
     Indication: CORONARY ARTERY DISEASE
     Route: 042
     Dates: start: 20120423, end: 20120423
  6. METOPROLOL [Concomitant]
     Indication: HYPERTENSION
     Route: 048
     Dates: end: 20120423
  7. FLUMAZENIL [Concomitant]
     Indication: DRUG TOXICITY PROPHYLAXIS
     Route: 042
     Dates: start: 20120423, end: 20120423
  8. FUROSEMIDE [Concomitant]
     Indication: DIURETIC THERAPY
     Route: 042
     Dates: start: 20120424, end: 20120426
  9. MORPHINE [Concomitant]
     Indication: PAIN
     Route: 042
     Dates: start: 20120423, end: 20120424
  10. ZOFIL [Concomitant]
     Indication: CORONARY ARTERY DISEASE
     Route: 048
  11. CEFUROXIME [Concomitant]
     Indication: INFECTION
     Route: 042
     Dates: start: 20120423, end: 20120425
  12. ASPEGIC 1000 [Concomitant]
     Indication: CORONARY ARTERY DISEASE
     Route: 042
     Dates: start: 20120423, end: 20120423
  13. SIMVASTATIN [Concomitant]
     Indication: HYPERCHOLESTEROLAEMIA
     Route: 048
     Dates: end: 20120425
  14. HYDROCORTISONE [Concomitant]
     Indication: NERVOUS SYSTEM DISORDER
     Route: 042
     Dates: start: 20120424, end: 20120425
  15. MIDAZOLAM [Concomitant]
     Indication: MUSCLE RELAXANT THERAPY
     Route: 042
     Dates: start: 20120423, end: 20120423
  16. NITROGLYCERIN [Concomitant]
     Indication: CHEST PAIN
     Route: 048
     Dates: start: 20120423, end: 20120423
  17. AZD6140 [Suspect]
     Indication: CORONARY ARTERY DISEASE
     Route: 048
     Dates: start: 20110701
  18. METRONIDAZOLE [Concomitant]
     Indication: INFECTION
     Route: 042
     Dates: start: 20120423, end: 20120425
  19. ACETAMINOPHEN [Concomitant]
     Indication: PAIN
     Route: 042
     Dates: start: 20120423, end: 20120423
  20. ASPIRIN [Concomitant]
     Route: 048
     Dates: end: 20120425
  21. PANTOPRAZOLE [Concomitant]
     Indication: HYPERCHLORHYDRIA
     Route: 048
  22. FINASTERIDE AUROBINDO [Concomitant]
     Indication: BENIGN PROSTATIC HYPERPLASIA
     Route: 048
     Dates: end: 20120425
  23. MOVICOLON [Concomitant]
     Indication: CONSTIPATION
     Route: 048
     Dates: start: 20120423, end: 20120425
  24. SMOFKABIVEN [Concomitant]
     Indication: NUTRITIONAL SUPPORT
     Route: 042
     Dates: start: 20120425, end: 20120426
  25. PROPOFOL [Concomitant]
     Indication: PAIN
     Route: 042
     Dates: start: 20120423, end: 20120425
  26. DOBUTREX [Concomitant]
     Indication: HYPOTENSION
     Route: 042
     Dates: start: 20120403, end: 20120424
  27. NOREPINEPHRINE BITARTRATE [Concomitant]
     Indication: HYPOTENSION
     Route: 042
     Dates: start: 20120423, end: 20120424

REACTIONS (5)
  - INTESTINAL ISCHAEMIA [None]
  - ILIAC ARTERY OCCLUSION [None]
  - GASTRITIS HYPERTROPHIC [None]
  - RENAL FAILURE [None]
  - ULCER HAEMORRHAGE [None]
